FAERS Safety Report 6845980-X (Version None)
Quarter: 2010Q3

REPORT INFORMATION
  Report Type: 
  Country: None (occurrence: None)
  Receive Date: 20100715
  Receipt Date: 20070831
  Transmission Date: 20110219
  Serious: No
  Sender: FDA-Public Use
  Company Number: US-PFIZER INC-2007074177

PATIENT
  Sex: Female

DRUGS (7)
  1. CHANTIX [Suspect]
     Indication: SMOKING CESSATION THERAPY
     Dates: start: 20070101
  2. LIPITOR [Suspect]
     Indication: BLOOD CHOLESTEROL INCREASED
  3. HYDROCHLOROTHIAZIDE [Concomitant]
  4. XANAX [Concomitant]
  5. TYLENOL [Concomitant]
  6. ATENOLOL [Concomitant]
  7. LOVASTATIN [Concomitant]

REACTIONS (6)
  - ASTHENIA [None]
  - DRY MOUTH [None]
  - MIDDLE INSOMNIA [None]
  - POLLAKIURIA [None]
  - UNEVALUABLE EVENT [None]
  - URINARY TRACT INFECTION [None]
